FAERS Safety Report 19067136 (Version 1)
Quarter: 2021Q1

REPORT INFORMATION
  Report Type: Spontaneous
  Country: GB (occurrence: GB)
  Receive Date: 20210329
  Receipt Date: 20210329
  Transmission Date: 20210420
  Serious: Yes (Hospitalization, Disabling, Other)
  Sender: FDA-Public Use
  Company Number: GB-ORGANON-O2103GBR002831

PATIENT
  Age: 38 Year
  Sex: Female
  Weight: 63.5 kg

DRUGS (4)
  1. OLANZAPINE. [Concomitant]
     Active Substance: OLANZAPINE
  2. ELOCON [Suspect]
     Active Substance: MOMETASONE FUROATE
     Indication: ECZEMA
     Dosage: IT WAS A TOPICAL CREAM, THIS IS DIFFICULT TO DETERMINE.
     Route: 061
     Dates: start: 19800318, end: 20160101
  3. BETNOVATE C [Suspect]
     Active Substance: BETAMETHASONE VALERATE\CLIOQUINOL
     Indication: ECZEMA
     Dosage: IT WAS A TOPICAL CREAM, THIS IS DIFFICULT TO DETERMINE.
     Route: 061
     Dates: start: 19800318, end: 20160101
  4. DUPIXENT [Concomitant]
     Active Substance: DUPILUMAB
     Indication: ILL-DEFINED DISORDER

REACTIONS (13)
  - Steroid dependence [Unknown]
  - Insomnia [Not Recovered/Not Resolved]
  - Skin weeping [Not Recovered/Not Resolved]
  - Skin burning sensation [Not Recovered/Not Resolved]
  - Erythema [Unknown]
  - Haemorrhage [Unknown]
  - Skin exfoliation [Not Recovered/Not Resolved]
  - Neuralgia [Not Recovered/Not Resolved]
  - Product prescribing issue [Unknown]
  - Arthralgia [Not Recovered/Not Resolved]
  - Psychotic disorder [Not Recovered/Not Resolved]
  - Pruritus [Not Recovered/Not Resolved]
  - Pain [Not Recovered/Not Resolved]

NARRATIVE: CASE EVENT DATE: 19980318
